FAERS Safety Report 4485730-8 (Version None)
Quarter: 2004Q4

REPORT INFORMATION
  Report Type: 
  Country: None (occurrence: None)
  Receive Date: 20041026
  Receipt Date: 20041013
  Transmission Date: 20050328
  Serious: Yes (Death)
  Sender: FDA-Public Use
  Company Number: JP-JNJFOC-20041002413

PATIENT
  Sex: Female

DRUGS (17)
  1. DUROTEP [Suspect]
     Indication: CANCER PAIN
     Route: 062
  2. FENTANYL CITRATE [Suspect]
     Indication: CANCER PAIN
     Route: 042
  3. PERPHENAZINE [Concomitant]
     Route: 049
  4. ITOPRIDE HYDROCHLORIDE [Concomitant]
     Route: 049
  5. MAGNESIUM OXIDE [Concomitant]
     Indication: CONSTIPATION
     Route: 049
  6. DOMPERIDONE [Concomitant]
     Route: 051
  7. VANCOMYCIN HYDROCHLORIDE [Concomitant]
     Indication: URINARY TRACT INFECTION
     Route: 065
  8. FLURBIPROFEN AXETIL [Concomitant]
     Indication: CANCER PAIN
     Route: 042
  9. FAMOTIDINE [Concomitant]
     Indication: PEPTIC ULCER
     Route: 042
  10. CHONDROITIN SULFATE IRON COLLOID [Concomitant]
     Route: 042
  11. MORPHINE HYDROCHLORIDE [Concomitant]
     Route: 042
  12. MORPHINE HYDROCHLORIDE [Concomitant]
     Route: 042
  13. MORPHINE HYDROCHLORIDE [Concomitant]
     Route: 042
  14. MORPHINE HYDROCHLORIDE [Concomitant]
     Route: 042
  15. MORPHINE HYDROCHLORIDE [Concomitant]
     Indication: CANCER PAIN
     Route: 042
  16. CHLORPHENIRAMINE MALEATE [Concomitant]
     Route: 042
  17. DAI-KENCHU-TO, HERBAL PREPARATION [Concomitant]
     Indication: CONSTIPATION
     Dosage: 2 DAILY
     Route: 049

REACTIONS (5)
  - LUNG CANCER METASTATIC [None]
  - MALIGNANT NEOPLASM PROGRESSION [None]
  - NAUSEA [None]
  - PAIN EXACERBATED [None]
  - VOMITING [None]
